FAERS Safety Report 16156322 (Version 1)
Quarter: 2019Q2

REPORT INFORMATION
  Report Type: Spontaneous
  Country: JP (occurrence: JP)
  Receive Date: 20190404
  Receipt Date: 20190404
  Transmission Date: 20190711
  Serious: Yes (Other)
  Sender: FDA-Public Use
  Company Number: JP-APOTEX-2019AP011223

PATIENT
  Age: 67 Year
  Sex: Male

DRUGS (1)
  1. PAXIL [Suspect]
     Active Substance: PAROXETINE HYDROCHLORIDE
     Indication: DEPRESSIVE SYMPTOM
     Dosage: 10 MG, UNK
     Route: 048

REACTIONS (7)
  - Disinhibition [Recovering/Resolving]
  - Cognitive disorder [Recovering/Resolving]
  - Inappropriate antidiuretic hormone secretion [Unknown]
  - Dizziness [Unknown]
  - Hyponatraemia [Unknown]
  - Osmotic demyelination syndrome [Not Recovered/Not Resolved]
  - Consciousness fluctuating [Recovering/Resolving]
